FAERS Safety Report 11259120 (Version 2)
Quarter: 2015Q3

REPORT INFORMATION
  Report Type: Spontaneous
  Country: JP (occurrence: JP)
  Receive Date: 20150710
  Receipt Date: 20150721
  Transmission Date: 20151125
  Serious: Yes (Hospitalization)
  Sender: FDA-Public Use
  Company Number: JP-PFIZER INC-2015224283

PATIENT
  Age: 90 Year
  Sex: Female

DRUGS (11)
  1. THYRADIN S [Concomitant]
     Active Substance: LEVOTHYROXINE SODIUM
     Dosage: UNK
     Route: 048
  2. MEMARY [Suspect]
     Active Substance: MEMANTINE HYDROCHLORIDE
     Dosage: UNK
     Route: 048
     Dates: end: 20150623
  3. RENIVACE [Concomitant]
     Active Substance: ENALAPRIL
     Dosage: UNK
     Route: 048
  4. LIPOVAS /00499301/ [Suspect]
     Active Substance: FENOFIBRATE
     Dosage: UNK
     Route: 048
     Dates: end: 20150623
  5. ECARD HD [Concomitant]
     Active Substance: CANDESARTAN CILEXETIL\HYDROCHLOROTHIAZIDE
     Dosage: UNK
     Route: 048
     Dates: end: 20150704
  6. VEMAS [Concomitant]
     Dosage: UNK
     Route: 048
  7. NORVASC [Suspect]
     Active Substance: AMLODIPINE BESYLATE
     Dosage: 7.5 MG, DAILY
     Route: 048
  8. SENNOSIDE /00571902/ [Concomitant]
     Active Substance: SENNOSIDES A AND B
     Dosage: UNK
     Route: 048
  9. MERISLON [Concomitant]
     Active Substance: BETAHISTINE MESILATE
     Dosage: UNK
     Route: 048
  10. ZYLORIC [Suspect]
     Active Substance: ALLOPURINOL
     Dosage: UNK
     Route: 048
     Dates: end: 20150623
  11. MAINTATE [Concomitant]
     Active Substance: BISOPROLOL FUMARATE
     Dosage: UNK
     Route: 048

REACTIONS (3)
  - Blood creatine phosphokinase increased [Recovered/Resolved]
  - Aspartate aminotransferase increased [Recovered/Resolved]
  - Alanine aminotransferase increased [Recovered/Resolved]
